FAERS Safety Report 25251662 (Version 6)
Quarter: 2025Q4

REPORT INFORMATION
  Report Type: Report from Study
  Country: US (occurrence: US)
  Receive Date: 20250429
  Receipt Date: 20251125
  Transmission Date: 20260118
  Serious: No
  Sender: TRAVERE THERAPEUTICS
  Company Number: US-TRAVERE-2025TVT00433

PATIENT
  Age: 76 Year
  Sex: Male
  Weight: 62.6 kg

DRUGS (15)
  1. FILSPARI [Suspect]
     Active Substance: SPARSENTAN
     Indication: IgA nephropathy
     Dosage: EXPIRY DATE: 31-AUG-2027
     Route: 048
     Dates: start: 20241218
  2. AMLODIPINE [Concomitant]
     Active Substance: AMLODIPINE BESYLATE
  3. ATORVASTATIN [Concomitant]
     Active Substance: ATORVASTATIN
  4. CARVEDILOL [Concomitant]
     Active Substance: CARVEDILOL
  5. ELIQUIS [Concomitant]
     Active Substance: APIXABAN
  6. Diclofenac 1% topical gel [Concomitant]
  7. EPLERENONE [Concomitant]
     Active Substance: EPLERENONE
  8. FARXIGA [Concomitant]
     Active Substance: DAPAGLIFLOZIN PROPANEDIOL
  9. OFEV [Concomitant]
     Active Substance: NINTEDANIB
  10. POTASSIUM [Concomitant]
     Active Substance: POTASSIUM
  11. TARPEYO [Concomitant]
     Active Substance: BUDESONIDE
  12. FUROSEMIDE [Concomitant]
     Active Substance: FUROSEMIDE
  13. LEVOTHYROXINE [Concomitant]
     Active Substance: LEVOTHYROXINE
  14. METFORMIN [Concomitant]
     Active Substance: METFORMIN HYDROCHLORIDE
  15. PANTOPRAZOLE [Concomitant]
     Active Substance: PANTOPRAZOLE

REACTIONS (13)
  - Blood glucose increased [Unknown]
  - Protein total increased [Unknown]
  - Urine protein/creatinine ratio increased [Unknown]
  - Urine analysis abnormal [Unknown]
  - Joint swelling [None]
  - Peripheral swelling [Recovered/Resolved]
  - Diarrhoea [Unknown]
  - Fatigue [None]
  - Inner ear disorder [None]
  - Hypotension [Unknown]
  - Asthenia [Unknown]
  - Dizziness postural [Unknown]
  - Weight decreased [Unknown]

NARRATIVE: CASE EVENT DATE: 20250225
